FAERS Safety Report 11906452 (Version 3)
Quarter: 2016Q2

REPORT INFORMATION
  Report Type: Spontaneous
  Country: US (occurrence: US)
  Receive Date: 20160111
  Receipt Date: 20160509
  Transmission Date: 20160815
  Serious: No
  Sender: FDA-Public Use
  Company Number: US-PFIZER INC-2016007180

PATIENT
  Age: 57 Year
  Sex: Female
  Weight: 95.71 kg

DRUGS (5)
  1. XELJANZ [Suspect]
     Active Substance: TOFACITINIB CITRATE
     Indication: RHEUMATOID ARTHRITIS
     Dosage: 5 MG, 2X/DAY
  2. NAPROXEN. [Concomitant]
     Active Substance: NAPROXEN
     Indication: JOINT SWELLING
     Dosage: 500 MG, 2X/DAY
     Dates: start: 201506
  3. HERBALIFE PRODUCTS [Concomitant]
     Active Substance: HERBALS
     Indication: WEIGHT DECREASED
  4. PANTOPRAZOLE SODIUM. [Concomitant]
     Active Substance: PANTOPRAZOLE SODIUM
     Indication: GASTRITIS
     Dosage: 40 MG, 1X/DAY, (30 MINUTES BEFORE EATING)
  5. DOXYCYCLINE HYCLATE. [Concomitant]
     Active Substance: DOXYCYCLINE HYCLATE
     Indication: EYE DISORDER
     Dosage: 100 MG, 2X/DAY

REACTIONS (5)
  - Anxiety [Recovering/Resolving]
  - Dry eye [Unknown]
  - Dizziness [Unknown]
  - Nervousness [Recovering/Resolving]
  - Weight increased [Recovering/Resolving]
